FAERS Safety Report 25853103 (Version 4)
Quarter: 2025Q4

REPORT INFORMATION
  Report Type: Spontaneous
  Country: US (occurrence: US)
  Receive Date: 20250926
  Receipt Date: 20251107
  Transmission Date: 20260117
  Serious: No
  Sender: PFIZER
  Company Number: US-PFIZER INC-202500186488

PATIENT
  Age: 10 Year
  Sex: Female
  Weight: 35.38 kg

DRUGS (2)
  1. GENOTROPIN [Suspect]
     Active Substance: SOMATROPIN
     Indication: Turner^s syndrome
     Dosage: 6 DAYS A WEEK ALTERNATES 1.4 AND 1.6 MG IN HER LEG
     Dates: start: 2023
  2. GENOTROPIN [Suspect]
     Active Substance: SOMATROPIN
     Indication: Growth hormone deficiency
     Dosage: 6 DAYS A WEEK ALTERNATES 1.4 AND 1.6 MG IN HER LEG
     Dates: start: 2023

REACTIONS (3)
  - Device information output issue [Unknown]
  - Device power source issue [Unknown]
  - Drug dose omission by device [Unknown]

NARRATIVE: CASE EVENT DATE: 20250901
